FAERS Safety Report 18392559 (Version 1)
Quarter: 2020Q4

REPORT INFORMATION
  Report Type: Spontaneous
  Country: US (occurrence: US)
  Receive Date: 20201016
  Receipt Date: 20201016
  Transmission Date: 20210114
  Serious: Yes (Other)
  Sender: FDA-Public Use
  Company Number: None

PATIENT
  Age: 39 Year
  Sex: Female
  Weight: 70 kg

DRUGS (11)
  1. METHYLPREDNISOLONE 40MG Q8H [Concomitant]
     Dates: start: 20201008, end: 20201010
  2. CEFTRIAXONE 1GM IV Q24H [Concomitant]
     Dates: start: 20201008, end: 20201010
  3. LACOBACILLUS/STREPCOCCUS (RISAQUAD) PROBIOTIC DAILY [Concomitant]
     Dates: start: 20201008, end: 20201010
  4. FIORICEL 50/325/40MG [Concomitant]
     Dates: start: 20201008, end: 20201010
  5. BENZONATATE 100MG TID PRN [Concomitant]
     Dates: start: 20201008, end: 20201010
  6. REMDESIVIR. [Suspect]
     Active Substance: REMDESIVIR
     Indication: COVID-19
     Dosage: ?          OTHER FREQUENCY:ONCE;?
     Route: 042
     Dates: start: 20201009, end: 20201009
  7. GABAPENTIN 100MG Q8H PRN [Concomitant]
     Dates: start: 20201008, end: 20201010
  8. FAMOTIDINE 20MG Q12H [Concomitant]
     Dates: start: 20201008, end: 20201010
  9. ASPIRIN 81MG DAILY [Concomitant]
     Active Substance: ASPIRIN
     Dates: start: 20201008, end: 20201010
  10. ENOXAPARIN 40MG SQ DAILY [Concomitant]
     Dates: start: 20201008, end: 20201010
  11. MONTELEUKAST 10MG DAILY [Concomitant]
     Dates: start: 20201008, end: 20201010

REACTIONS (2)
  - Liver function test increased [None]
  - Product formulation issue [None]

NARRATIVE: CASE EVENT DATE: 20201010
